FAERS Safety Report 6770847-5 (Version None)
Quarter: 2010Q2

REPORT INFORMATION
  Report Type: 
  Country: None (occurrence: None)
  Receive Date: 20100614
  Receipt Date: 20100614
  Transmission Date: 20101027
  Serious: Yes (Hospitalization)
  Sender: FDA-Public Use
  Company Number: None

PATIENT
  Sex: Female
  Weight: 61.48 kg

DRUGS (2)
  1. CARBOPLATIN [Suspect]
     Dosage: 690 MG
     Dates: end: 20100524
  2. TAXOL [Suspect]
     Dosage: 260 MG
     Dates: end: 20100607

REACTIONS (13)
  - FALL [None]
  - HAEMATOCRIT DECREASED [None]
  - HAEMOGLOBIN DECREASED [None]
  - HEAD INJURY [None]
  - HEADACHE [None]
  - MENINGISM [None]
  - NAUSEA [None]
  - NECK PAIN [None]
  - NEUTROPHIL COUNT DECREASED [None]
  - PHOTOPHOBIA [None]
  - PULMONARY EMBOLISM [None]
  - VOMITING [None]
  - WHITE BLOOD CELL COUNT DECREASED [None]
